FAERS Safety Report 8303690-6 (Version None)
Quarter: 2012Q2

REPORT INFORMATION
  Report Type: 
  Country: None (occurrence: None)
  Receive Date: 20120418
  Receipt Date: 20120404
  Transmission Date: 20120825
  Serious: Yes (Other)
  Sender: FDA-Public Use
  Company Number: JP-20120016

PATIENT
  Age: 61 Year
  Sex: Female

DRUGS (2)
  1. 10ML (LIPIODOL ULTRA FLUIDE) (ETHIODIZED OIL) [Suspect]
     Indication: SCLEROTHERAPY
     Dosage: UNK
  2. (BUCRYRATE) ( -CYANOACRYLATE-MONOMER) [Suspect]
     Indication: SCLEROTHERAPY
     Dosage: 3.5 ML (3.5 ML, 1 IN 1 D)
     Route: 065

REACTIONS (4)
  - RETROPERITONEAL ABSCESS [None]
  - ASCITES [None]
  - PROCEDURAL COMPLICATION [None]
  - OFF LABEL USE [None]
